FAERS Safety Report 6709946-2 (Version None)
Quarter: 2010Q2

REPORT INFORMATION
  Report Type: 
  Country: None (occurrence: None)
  Receive Date: 20100504
  Receipt Date: 20091023
  Transmission Date: 20101027
  Serious: Yes (Hospitalization, Disabling, Other)
  Sender: FDA-Public Use
  Company Number: GB-BAYER-200912112BNE

PATIENT
  Age: 57 Year
  Sex: Female

DRUGS (1)
  1. BETAFERON [Suspect]
     Indication: MULTIPLE SCLEROSIS
     Route: 058

REACTIONS (5)
  - AFFECTIVE DISORDER [None]
  - BLINDNESS TRANSIENT [None]
  - MULTIPLE SCLEROSIS RELAPSE [None]
  - MYOCARDIAL INFARCTION [None]
  - VIRAL INFECTION [None]
